FAERS Safety Report 9832607 (Version 1)
Quarter: 2014Q1

REPORT INFORMATION
  Report Type: Spontaneous
  Country: US (occurrence: US)
  Receive Date: 20140121
  Receipt Date: 20140121
  Transmission Date: 20141002
  Serious: No
  Sender: FDA-Public Use
  Company Number: US-B.I. PHARMACEUTICALS,INC./RIDGEFIELD-2014-BI-01614BP

PATIENT
  Age: 76 Year
  Sex: Female
  Weight: 31 kg

DRUGS (2)
  1. COMBIVENT [Suspect]
     Indication: CHEST DISCOMFORT
     Dosage: STRENGTH: 20 MCG / 100 MCG; DAILY DOSE: 160MCG/800 MCG
     Route: 055
     Dates: start: 20140110, end: 20140111
  2. PRO-AIR [Concomitant]

REACTIONS (5)
  - Tachycardia [Recovered/Resolved]
  - Dyspnoea [Recovered/Resolved]
  - Abdominal discomfort [Recovered/Resolved]
  - Prescribed overdose [Recovered/Resolved]
  - Off label use [Unknown]
